FAERS Safety Report 5777819-8 (Version None)
Quarter: 2008Q2

REPORT INFORMATION
  Report Type: 
  Country: None (occurrence: None)
  Receive Date: 20080601
  Receipt Date: 20080114
  Transmission Date: 20081010
  Serious: No
  Sender: FDA-Public Use
  Company Number: US200801002986

PATIENT
  Age: 63 Year
  Sex: Female
  Weight: 118.8 kg

DRUGS (3)
  1. BYETTA [Suspect]
     Indication: TYPE 2 DIABETES MELLITUS
     Dosage: 5 UG, 2/D, SUBCUTANEOUS
     Route: 058
     Dates: start: 20080110
  2. GLIPIZIDE XL (GLIPIZIDE) [Concomitant]
  3. DRUG USED IN DIABETES [Concomitant]

REACTIONS (2)
  - DRUG EFFECT DECREASED [None]
  - MYALGIA [None]
